FAERS Safety Report 8858433 (Version 1)
Quarter: 2012Q4

REPORT INFORMATION
  Report Type: 
  Country: CA (occurrence: CA)
  Receive Date: 20121024
  Receipt Date: 20121024
  Transmission Date: 20130627
  Serious: Yes (Other)
  Sender: FDA-Public Use
  Company Number: CA-009507513-1206USA02189

PATIENT

DRUGS (12)
  1. ISENTRESS [Suspect]
     Route: 048
  2. BARACLUDE [Concomitant]
     Dosage: UNK
  3. CELSENTRI [Suspect]
  4. EFFEXOR XR [Concomitant]
  5. IMOVANE [Suspect]
     Indication: SLEEP DISORDER
     Dosage: UNK mg, PRN
     Route: 048
     Dates: start: 2008, end: 20110703
  6. INTELENCE [Suspect]
  7. NORTRIPTYLINE [Concomitant]
  8. OXYCODONE [Concomitant]
  9. OXYCONTIN [Concomitant]
  10. GABAPENTIN [Concomitant]
  11. PREZISTA [Concomitant]
     Dosage: 800 mg, UNK
     Dates: start: 2010, end: 201005
  12. RITONAVIR [Suspect]
     Dosage: 100 mg, UNK

REACTIONS (4)
  - Lower limb fracture [Recovered/Resolved]
  - Fall [Recovered/Resolved]
  - Joint dislocation [Recovered/Resolved]
  - Somnambulism [Recovered/Resolved]
